FAERS Safety Report 7792489-5 (Version None)
Quarter: 2011Q3

REPORT INFORMATION
  Report Type: 
  Country: None (occurrence: None)
  Receive Date: 20110930
  Receipt Date: 20110930
  Transmission Date: 20111222
  Serious: Yes (Other)
  Sender: FDA-Public Use
  Company Number: None

PATIENT
  Sex: Male
  Weight: 94.8018 kg

DRUGS (1)
  1. LEVOCETIRIZINE DIHYDROCHLORIDE [Suspect]
     Indication: RHINITIS ALLERGIC
     Dosage: 9 DAY PO
     Route: 048

REACTIONS (2)
  - HEART RATE INCREASED [None]
  - DRUG INEFFECTIVE [None]
